FAERS Safety Report 16698626 (Version 1)
Quarter: 2019Q3

REPORT INFORMATION
  Report Type: Spontaneous
  Country: NL (occurrence: NL)
  Receive Date: 20190813
  Receipt Date: 20190813
  Transmission Date: 20191004
  Serious: Yes (Hospitalization)
  Sender: FDA-Public Use
  Company Number: NL-TEVA-2019-NL-1091088

PATIENT
  Age: 65 Year
  Sex: Female
  Weight: 77 kg

DRUGS (1)
  1. TAMOXIFEN TABLET, 20 MG (MILLIGRAM) [Suspect]
     Active Substance: TAMOXIFEN
     Indication: BREAST CANCER
     Dosage: 1X PER DAY
     Route: 065
     Dates: start: 20190619, end: 20190621

REACTIONS (3)
  - Pyrexia [Recovered/Resolved with Sequelae]
  - Vomiting [Recovered/Resolved with Sequelae]
  - Post procedural inflammation [Recovered/Resolved with Sequelae]

NARRATIVE: CASE EVENT DATE: 20190621
